FAERS Safety Report 7237474-7 (Version None)
Quarter: 2011Q1

REPORT INFORMATION
  Report Type: 
  Country: None (occurrence: None)
  Receive Date: 20110112
  Receipt Date: 20101221
  Transmission Date: 20110831
  Serious: Yes (Other)
  Sender: FDA-Public Use
  Company Number: FKO201000606

PATIENT
  Age: 61 Year
  Sex: Male

DRUGS (3)
  1. FLUOROURACIL [Suspect]
     Indication: OESOPHAGEAL CARCINOMA
     Dosage: (DAYS 1-5)
  2. CISPLATIN [Suspect]
     Indication: OESOPHAGEAL CARCINOMA
     Dosage: (80 MG/M2, DAY1)
  3. DEXAMETHASONE [Concomitant]

REACTIONS (1)
  - NAUSEA [None]
